FAERS Safety Report 14646655 (Version 1)
Quarter: 2018Q1

REPORT INFORMATION
  Report Type: Spontaneous
  Country: US (occurrence: US)
  Receive Date: 20180315
  Receipt Date: 20180315
  Transmission Date: 20180509
  Serious: Yes (Death, Hospitalization)
  Sender: FDA-Public Use
  Company Number: None

PATIENT
  Age: 80 Year
  Sex: Male
  Weight: 82.9 kg

DRUGS (3)
  1. CARBOPLATIN. [Suspect]
     Active Substance: CARBOPLATIN
     Dates: end: 20160706
  2. TAXOL [Suspect]
     Active Substance: PACLITAXEL
     Dates: end: 20160706
  3. METFORMIN HYDROCHLORIDE. [Suspect]
     Active Substance: METFORMIN HYDROCHLORIDE
     Dates: end: 20160709

REACTIONS (7)
  - Productive cough [None]
  - Pulmonary mass [None]
  - Cough [None]
  - Dyspnoea [None]
  - Atrial fibrillation [None]
  - Unresponsive to stimuli [None]
  - Lung infiltration [None]

NARRATIVE: CASE EVENT DATE: 20160715
